FAERS Safety Report 5151658-3 (Version None)
Quarter: 2006Q4

REPORT INFORMATION
  Report Type: 
  Country: None (occurrence: None)
  Receive Date: 20061115
  Receipt Date: 20061103
  Transmission Date: 20070319
  Serious: Yes (Other)
  Sender: FDA-Public Use
  Company Number: US-ROCHE-470131

PATIENT
  Sex: Female

DRUGS (1)
  1. XELODA [Suspect]
     Route: 048
     Dates: start: 20060815

REACTIONS (2)
  - HEPATIC STEATOSIS [None]
  - LIVER FUNCTION TEST ABNORMAL [None]
